FAERS Safety Report 6934141-1 (Version None)
Quarter: 2010Q3

REPORT INFORMATION
  Report Type: 
  Country: None (occurrence: None)
  Receive Date: 20100820
  Receipt Date: 20100816
  Transmission Date: 20110219
  Serious: Yes (Other)
  Sender: FDA-Public Use
  Company Number: US-SANOFI-AVENTIS-2010SA046195

PATIENT
  Age: 62 Year
  Sex: Female

DRUGS (5)
  1. GLIMEPIRIDE [Suspect]
     Route: 048
  2. METFORMIN [Suspect]
     Route: 065
     Dates: end: 20100101
  3. ANTIHYPERTENSIVES [Concomitant]
  4. THYROID THERAPY [Concomitant]
     Indication: HYPOTHYROIDISM
  5. ALL OTHER THERAPEUTIC PRODUCTS [Concomitant]

REACTIONS (1)
  - CROHN'S DISEASE [None]
